FAERS Safety Report 7561752-5 (Version None)
Quarter: 2011Q2

REPORT INFORMATION
  Report Type: 
  Country: None (occurrence: None)
  Receive Date: 20110621
  Receipt Date: 20110610
  Transmission Date: 20111010
  Serious: Yes (Hospitalization)
  Sender: FDA-Public Use
  Company Number: DE-BAXTER-2011BH018291

PATIENT
  Age: 64 Year
  Sex: Female
  Weight: 87 kg

DRUGS (1)
  1. TISSEEL VH KIT [Suspect]
     Indication: WOUND CLOSURE
     Route: 065

REACTIONS (2)
  - WOUND INFECTION [None]
  - PANCREATIC FISTULA [None]
